FAERS Safety Report 16427918 (Version 1)
Quarter: 2019Q2

REPORT INFORMATION
  Report Type: Spontaneous
  Country: US (occurrence: US)
  Receive Date: 20190613
  Receipt Date: 20190613
  Transmission Date: 20190711
  Serious: No
  Sender: FDA-Public Use
  Company Number: US-SA-2019SA062719

PATIENT
  Age: 63 Year
  Sex: Female

DRUGS (1)
  1. TOUJEO [Suspect]
     Active Substance: INSULIN GLARGINE
     Dosage: 55 TO 60UNITS, BID
     Route: 065
     Dates: start: 201801

REACTIONS (2)
  - Wrong device used [Unknown]
  - Inappropriate schedule of product administration [Unknown]
